FAERS Safety Report 15801560 (Version 2)
Quarter: 2019Q3

REPORT INFORMATION
  Report Type: Spontaneous
  Country: CA (occurrence: CA)
  Receive Date: 20190109
  Receipt Date: 20190912
  Transmission Date: 20191004
  Serious: Yes (Life-Threatening, Other)
  Sender: FDA-Public Use
  Company Number: CA-MYLANLABS-2019M1000948

PATIENT
  Age: 38 Year
  Sex: Male

DRUGS (3)
  1. SPIRONOLACTONE. [Concomitant]
     Active Substance: SPIRONOLACTONE
     Indication: TRANSGENDER HORMONAL THERAPY
     Dosage: UNK
  2. ESTRADIOL. [Suspect]
     Active Substance: ESTRADIOL
     Indication: TRANSGENDER HORMONAL THERAPY
     Dosage: UNK
     Route: 065
  3. ESTRADIOL. [Suspect]
     Active Substance: ESTRADIOL
     Indication: TRANSGENDER HORMONAL THERAPY
     Dosage: UNK
     Route: 065

REACTIONS (6)
  - Pelvic venous thrombosis [Recovered/Resolved]
  - Off label use [Unknown]
  - Deep vein thrombosis [Recovered/Resolved]
  - Testis cancer [Not Recovered/Not Resolved]
  - Testicular germ cell cancer metastatic [Recovered/Resolved]
  - Testicular cancer metastatic [Recovered/Resolved]

NARRATIVE: CASE EVENT DATE: 2016
